FAERS Safety Report 5753738-8 (Version None)
Quarter: 2008Q2

REPORT INFORMATION
  Report Type: 
  Country: None (occurrence: None)
  Receive Date: 20080530
  Receipt Date: 20080519
  Transmission Date: 20081010
  Serious: Yes (Other)
  Sender: FDA-Public Use
  Company Number: SE-JNJFOC-20080503990

PATIENT
  Sex: Male

DRUGS (2)
  1. IMODIUM [Suspect]
  2. IMODIUM [Suspect]
     Indication: DRUG EXPOSURE DURING PREGNANCY

REACTIONS (3)
  - ASPERGER'S DISORDER [None]
  - DYSLEXIA [None]
  - LACTOSE INTOLERANCE [None]
